FAERS Safety Report 5919955-9 (Version None)
Quarter: 2008Q4

REPORT INFORMATION
  Report Type: 
  Country: None (occurrence: None)
  Receive Date: 20081015
  Receipt Date: 20080930
  Transmission Date: 20090506
  Serious: Yes (Hospitalization)
  Sender: FDA-Public Use
  Company Number: JP-GENENTECH-269396

PATIENT
  Age: 75 Year
  Sex: Male

DRUGS (2)
  1. AVASTIN [Suspect]
     Indication: LARGE INTESTINE CARCINOMA
     Dosage: 5 MG/KG, Q2W
     Route: 041
     Dates: start: 20080825, end: 20080825
  2. PLETAL [Suspect]
     Indication: DRUG USE FOR UNKNOWN INDICATION
     Route: 048

REACTIONS (2)
  - TACHYCARDIA [None]
  - VENOUS THROMBOSIS [None]
